FAERS Safety Report 5258915-0 (Version None)
Quarter: 2007Q1

REPORT INFORMATION
  Report Type: 
  Country: None (occurrence: None)
  Receive Date: 20061117
  Receipt Date: 20060117
  Transmission Date: 20070707
  Serious: Yes (Other)
  Sender: FDA-Public Use
  Company Number: US-JNJFOC-20060103596

PATIENT
  Age: 75 Year
  Sex: Male

DRUGS (4)
  1. LEVAQUIN [Suspect]
     Indication: BRONCHITIS
     Dosage: SEE IMAGE
     Route: 048
     Dates: start: 20051001, end: 20051001
  2. LEVAQUIN [Suspect]
     Indication: URINARY TRACT INFECTION
     Dosage: SEE IMAGE
     Route: 048
     Dates: start: 20051001, end: 20051001
  3. LEVAQUIN [Suspect]
     Indication: BRONCHITIS
     Dosage: SEE IMAGE
     Route: 048
     Dates: start: 20051216, end: 20051220
  4. LEVAQUIN [Suspect]
     Indication: URINARY TRACT INFECTION
     Dosage: SEE IMAGE
     Route: 048
     Dates: start: 20051216, end: 20051220

REACTIONS (1)
  - TENDON RUPTURE [None]
